FAERS Safety Report 5871622-6 (Version None)
Quarter: 2008Q3

REPORT INFORMATION
  Report Type: 
  Country: None (occurrence: None)
  Receive Date: 20080905
  Receipt Date: 20080826
  Transmission Date: 20090109
  Serious: Yes (Hospitalization)
  Sender: FDA-Public Use
  Company Number: JP-ABBOTT-08P-087-0474183-00

PATIENT
  Age: 76 Year
  Sex: Male

DRUGS (6)
  1. LEUPROLIDE ACETATE [Suspect]
     Indication: PROSTATE CANCER STAGE IV
     Route: 058
     Dates: start: 20060425, end: 20060425
  2. LEUPROLIDE ACETATE [Suspect]
     Dosage: 3.75 MG
     Route: 058
     Dates: start: 20041104, end: 20060329
  3. BICALUTAMIDE [Concomitant]
     Indication: PROSTATE CANCER STAGE IV
     Route: 048
     Dates: end: 20060711
  4. WARFARIN SODIUM [Concomitant]
     Indication: CEREBRAL INFARCTION
     Route: 048
  5. ACETYLSALICYLIC ACID SRT [Concomitant]
     Indication: CEREBRAL INFARCTION
     Route: 048
  6. CARVEDILOL [Concomitant]
     Indication: CARDIAC FAILURE
     Route: 048

REACTIONS (1)
  - PNEUMONIA [None]
